FAERS Safety Report 23444885 (Version 3)
Quarter: 2024Q1

REPORT INFORMATION
  Report Type: Spontaneous
  Country: BE (occurrence: BE)
  Receive Date: 20240125
  Receipt Date: 20240212
  Transmission Date: 20240409
  Serious: Yes (Death, Other)
  Sender: FDA-Public Use
  Company Number: BE-GILEAD-2024-0659811

PATIENT
  Sex: Female

DRUGS (6)
  1. TRODELVY [Suspect]
     Active Substance: SACITUZUMAB GOVITECAN-HZIY
     Indication: Product used for unknown indication
     Dosage: 3 COURSES
     Route: 065
     Dates: start: 20230920, end: 20231109
  2. CANDESARTAN CILEXETIL\HYDROCHLOROTHIAZIDE [Concomitant]
     Active Substance: CANDESARTAN CILEXETIL\HYDROCHLOROTHIAZIDE
  3. CALCIUM CARBONATE [Concomitant]
     Active Substance: CALCIUM CARBONATE
  4. CHOLECALCIFEROL [Concomitant]
     Active Substance: CHOLECALCIFEROL
  5. TRAMADOL [Concomitant]
     Active Substance: TRAMADOL\TRAMADOL HYDROCHLORIDE
  6. ELIQUIS [Concomitant]
     Active Substance: APIXABAN

REACTIONS (6)
  - Hepatotoxicity [Fatal]
  - Hepatitis chronic active [Not Recovered/Not Resolved]
  - Hepatic cirrhosis [Unknown]
  - Portal hypertension [Unknown]
  - Generalised oedema [Unknown]
  - Ascites [Unknown]
